FAERS Safety Report 6879723-0 (Version None)
Quarter: 2010Q3

REPORT INFORMATION
  Report Type: 
  Country: None (occurrence: None)
  Receive Date: 20100728
  Receipt Date: 20100720
  Transmission Date: 20110219
  Serious: Yes (Hospitalization)
  Sender: FDA-Public Use
  Company Number: DE-ELI_LILLY_AND_COMPANY-DE201007004695

PATIENT
  Sex: Male
  Weight: 86 kg

DRUGS (2)
  1. HUMALOG [Suspect]
     Indication: DIABETES MELLITUS
     Dosage: 18 UNK, UNK
     Route: 058
     Dates: end: 20100101
  2. LANTUS [Concomitant]
     Indication: DIABETES MELLITUS
     Dosage: 12 UNK, UNK
     Route: 058
     Dates: start: 20010101, end: 20100101

REACTIONS (1)
  - LIPOMA [None]
